FAERS Safety Report 4527820-7 (Version None)
Quarter: 2004Q4

REPORT INFORMATION
  Report Type: 
  Country: None (occurrence: None)
  Receive Date: 20041123
  Receipt Date: 20040903
  Transmission Date: 20050328
  Serious: Yes (Hospitalization)
  Sender: FDA-Public Use
  Company Number: ATO-04-0800

PATIENT
  Age: 27 Year
  Sex: Female
  Weight: 68 kg

DRUGS (16)
  1. TRISENOX [Suspect]
     Indication: ACUTE PROMYELOCYTIC LEUKAEMIA
     Dosage: 10 MG, IVI
     Route: 042
     Dates: start: 20040828
  2. APAP TAB [Concomitant]
  3. SENOKOT [Concomitant]
  4. ACYCLOVIR [Concomitant]
  5. CIPROFLOXACIN [Concomitant]
  6. FLUCONAZOLE [Concomitant]
  7. BENADRYL [Concomitant]
  8. PEPCID [Concomitant]
  9. LOMOTIL [Concomitant]
  10. ATIVAN [Concomitant]
  11. MILK OF MAGNESIA TAB [Concomitant]
  12. MORPHINE [Concomitant]
  13. MYLANTA [Concomitant]
  14. ZOFRAN [Concomitant]
  15. PERCOCET [Concomitant]
  16. COMPAZINE [Concomitant]

REACTIONS (2)
  - ALANINE AMINOTRANSFERASE INCREASED [None]
  - ASPARTATE AMINOTRANSFERASE INCREASED [None]
